FAERS Safety Report 9771128 (Version 1)
Quarter: 2013Q4

REPORT INFORMATION
  Report Type: Spontaneous
  Country: US (occurrence: US)
  Receive Date: 20131218
  Receipt Date: 20131218
  Transmission Date: 20140711
  Serious: Yes (Hospitalization)
  Sender: FDA-Public Use
  Company Number: US-ONYX-2013-2063

PATIENT
  Age: 47 Year
  Sex: Male

DRUGS (6)
  1. KYPROLIS [Suspect]
     Indication: PRODUCT USED FOR UNKNOWN INDICATION
  2. KYPROLIS [Suspect]
  3. DEXAMETHASONE [Concomitant]
     Indication: PRODUCT USED FOR UNKNOWN INDICATION
     Route: 042
  4. DEXAMETHASONE [Concomitant]
     Route: 048
  5. VORINOSTAT [Concomitant]
     Indication: PRODUCT USED FOR UNKNOWN INDICATION
     Route: 048
  6. LENALIDOMIDE [Concomitant]
     Indication: PRODUCT USED FOR UNKNOWN INDICATION

REACTIONS (1)
  - Infection [Unknown]
